FAERS Safety Report 16431682 (Version 1)
Quarter: 2019Q2

REPORT INFORMATION
  Report Type: Spontaneous
  Country: US (occurrence: US)
  Receive Date: 20190507
  Receipt Date: 20190507
  Transmission Date: 20190711
  Serious: No
  Sender: FDA-Public Use
  Company Number: None

PATIENT
  Sex: Female

DRUGS (4)
  1. XELJANZ [Suspect]
     Active Substance: TOFACITINIB CITRATE
     Indication: RHEUMATOID ARTHRITIS
     Route: 048
     Dates: start: 20190104
  2. LECVOTHYROXIN [Concomitant]
  3. PANTROPRAZOLE [Concomitant]
  4. AMLODIPINE [Concomitant]
     Active Substance: AMLODIPINE BESYLATE

REACTIONS (10)
  - Sjogren^s syndrome [None]
  - Alopecia [None]
  - Autoimmune thyroiditis [None]
  - Road traffic accident [None]
  - Bone disorder [None]
  - Hepatic failure [None]
  - Deafness [None]
  - Feeling abnormal [None]
  - Systemic lupus erythematosus [None]
  - Middle ear effusion [None]
